FAERS Safety Report 9479438 (Version 1)
Quarter: 2013Q3

REPORT INFORMATION
  Report Type: Spontaneous
  Country: US (occurrence: US)
  Receive Date: 20130827
  Receipt Date: 20130827
  Transmission Date: 20140515
  Serious: No
  Sender: FDA-Public Use
  Company Number: US-PFIZER INC-2013247502

PATIENT
  Sex: Female

DRUGS (2)
  1. CHILDRENS ADVIL [Suspect]
     Dosage: UNK
  2. CHILDRENS ADVIL [Suspect]
     Dosage: TWO TEASPOONS, UNK

REACTIONS (3)
  - Cough [Unknown]
  - Sneezing [Unknown]
  - Throat tightness [Unknown]
